FAERS Safety Report 5878342-2 (Version None)
Quarter: 2008Q3

REPORT INFORMATION
  Report Type: 
  Country: None (occurrence: None)
  Receive Date: 20080911
  Receipt Date: 20080902
  Transmission Date: 20090109
  Serious: Yes (Hospitalization, Disabling, Other)
  Sender: FDA-Public Use
  Company Number: US-PFIZER INC-2006114405

PATIENT
  Sex: Male
  Weight: 79.4 kg

DRUGS (5)
  1. NORVASC [Suspect]
     Indication: HYPERTENSION
     Route: 048
     Dates: start: 20060501, end: 20060514
  2. GLUCOVANCE [Concomitant]
     Route: 048
  3. VITAMIN E [Concomitant]
  4. CHROMIUM [Concomitant]
  5. IBUPROFEN [Concomitant]

REACTIONS (7)
  - COCHLEA IMPLANT [None]
  - DEAFNESS [None]
  - DEVICE RELATED INFECTION [None]
  - EMOTIONAL DISTRESS [None]
  - MIGRAINE [None]
  - PAIN [None]
  - TINNITUS [None]
